FAERS Safety Report 11729966 (Version 1)
Quarter: 2015Q4

REPORT INFORMATION
  Report Type: Spontaneous
  Country: US (occurrence: US)
  Receive Date: 20151029
  Receipt Date: 20151029
  Transmission Date: 20160304
  Serious: Yes (Death)
  Sender: FDA-Public Use
  Company Number: US-JNJFOC-20151020625

PATIENT
  Age: 20 Year
  Sex: Male

DRUGS (5)
  1. KEPPRA [Suspect]
     Active Substance: LEVETIRACETAM
     Indication: ACCIDENTAL EXPOSURE TO PRODUCT
     Dosage: 2 TABLETS
     Route: 065
  2. OYSTER SHELL CALCIUM [Suspect]
     Active Substance: CALCIUM
     Indication: ACCIDENTAL EXPOSURE TO PRODUCT
     Route: 065
  3. TOPAMAX [Suspect]
     Active Substance: TOPIRAMATE
     Indication: ACCIDENTAL EXPOSURE TO PRODUCT
     Route: 048
  4. TRILEPTAL [Suspect]
     Active Substance: OXCARBAZEPINE
     Indication: ACCIDENTAL EXPOSURE TO PRODUCT
     Dosage: 600 MG AND 300 MG
     Route: 065
  5. CLOZARIL [Suspect]
     Active Substance: CLOZAPINE
     Indication: ACCIDENTAL EXPOSURE TO PRODUCT
     Dosage: 4 TABLETS
     Route: 065

REACTIONS (2)
  - Drug administration error [Fatal]
  - Accidental overdose [Fatal]
